FAERS Safety Report 12484299 (Version 1)
Quarter: 2016Q2

REPORT INFORMATION
  Report Type: Spontaneous
  Country: BR (occurrence: BR)
  Receive Date: 20160621
  Receipt Date: 20160621
  Transmission Date: 20160815
  Serious: No
  Sender: FDA-Public Use
  Company Number: BR-UCBSA-2016022845

PATIENT
  Age: 55 Year
  Sex: Female
  Weight: 80 kg

DRUGS (1)
  1. KEPPRA [Suspect]
     Active Substance: LEVETIRACETAM
     Indication: SEIZURE
     Dosage: 500 MG, ONCE DAILY (QD)
     Dates: start: 20160427, end: 20160524

REACTIONS (2)
  - Off label use [Unknown]
  - Leukopenia [Recovered/Resolved]

NARRATIVE: CASE EVENT DATE: 20160427
